FAERS Safety Report 15014925 (Version 1)
Quarter: 2018Q2

REPORT INFORMATION
  Report Type: Spontaneous
  Country: US (occurrence: US)
  Receive Date: 20180615
  Receipt Date: 20180615
  Transmission Date: 20180711
  Serious: Yes (Hospitalization, Other)
  Sender: FDA-Public Use
  Company Number: US-APOTEX-2018AP015875

PATIENT
  Age: 30 Year
  Sex: Male

DRUGS (2)
  1. FENTANYL. [Suspect]
     Active Substance: FENTANYL
     Indication: PRODUCT USED FOR UNKNOWN INDICATION
     Dosage: UNK
     Route: 065
  2. COCAINE [Suspect]
     Active Substance: COCAINE
     Indication: PRODUCT USED FOR UNKNOWN INDICATION
     Dosage: UNK
     Route: 065

REACTIONS (8)
  - Amnestic disorder [Unknown]
  - Confusional state [Unknown]
  - Central nervous system lesion [Unknown]
  - Memory impairment [Unknown]
  - Overdose [Unknown]
  - Anterograde amnesia [Unknown]
  - Drug abuse [Unknown]
  - Brain injury [Unknown]
